FAERS Safety Report 14236563 (Version 3)
Quarter: 2018Q1

REPORT INFORMATION
  Report Type: Spontaneous
  Country: US (occurrence: US)
  Receive Date: 20171129
  Receipt Date: 20180116
  Transmission Date: 20180508
  Serious: Yes (Hospitalization)
  Sender: FDA-Public Use
  Company Number: US-PFIZER INC-2017510941

PATIENT
  Age: 69 Year
  Sex: Female
  Weight: 54.43 kg

DRUGS (14)
  1. PRISTIQ EXTENDED-RELEASE [Suspect]
     Active Substance: DESVENLAFAXINE SUCCINATE
     Dosage: 25 MG, 1X/DAY
     Route: 048
     Dates: start: 20171126
  2. LAMOTRIGINE. [Concomitant]
     Active Substance: LAMOTRIGINE
     Dosage: 50 MG, DAILY (25 MG X 2 DAILY)
     Dates: start: 2010
  3. LEVOTHYROXINE. [Concomitant]
     Active Substance: LEVOTHYROXINE
     Dosage: 75 UG, 1X/DAY (75 MCG X 1 DAILY)
  4. ATORVASTATIN [Concomitant]
     Active Substance: ATORVASTATIN
     Dosage: 10 MG, 1X/DAY (10 MG X1 DAILY)
     Dates: start: 2016, end: 201711
  5. TRAMADOL. [Concomitant]
     Active Substance: TRAMADOL
     Indication: PAIN
     Dosage: 50 MG, AS NEEDED
     Dates: start: 201709, end: 201712
  6. PRISTIQ EXTENDED-RELEASE [Suspect]
     Active Substance: DESVENLAFAXINE SUCCINATE
     Dosage: 25 MG, ALTERNATE DAY  EVERY OTHER DAY
     Route: 048
     Dates: start: 20171120, end: 20171125
  7. LAMOTRIGINE. [Concomitant]
     Active Substance: LAMOTRIGINE
     Dosage: UNK, AS NEEDED
  8. LEVOTHYROXINE. [Concomitant]
     Active Substance: LEVOTHYROXINE
     Dosage: UNK, AS NEEDED
  9. NAPROXEN. [Concomitant]
     Active Substance: NAPROXEN
     Dosage: UNK, AS NEEDED
     Dates: end: 201710
  10. CYCLOBENZAPRINE. [Concomitant]
     Active Substance: CYCLOBENZAPRINE
     Dosage: UNK, AS NEEDED
     Dates: end: 201712
  11. PRISTIQ EXTENDED-RELEASE [Suspect]
     Active Substance: DESVENLAFAXINE SUCCINATE
     Indication: DEPRESSION
     Dosage: 50 MG, 1X/DAY
     Route: 048
     Dates: start: 2008, end: 20171105
  12. PRISTIQ EXTENDED-RELEASE [Suspect]
     Active Substance: DESVENLAFAXINE SUCCINATE
     Dosage: 25 MG, 1X/DAY
     Route: 048
     Dates: start: 20171106, end: 20171119
  13. NAPROXEN. [Concomitant]
     Active Substance: NAPROXEN
     Dosage: 375 MG, 1X/DAY
     Dates: start: 201710, end: 201711
  14. CYCLOBENZAPRINE. [Concomitant]
     Active Substance: CYCLOBENZAPRINE
     Dosage: 5 MG, 3X/DAY
     Dates: start: 201709, end: 201712

REACTIONS (6)
  - Chest pain [Recovered/Resolved]
  - Withdrawal syndrome [Recovered/Resolved]
  - Intentional product misuse [Recovered/Resolved]
  - Paraesthesia [Recovered/Resolved]
  - Painful respiration [Recovered/Resolved]
  - Confusional state [Recovered/Resolved]

NARRATIVE: CASE EVENT DATE: 201711
